FAERS Safety Report 23265426 (Version 1)
Quarter: 2023Q4

REPORT INFORMATION
  Report Type: Spontaneous
  Country: US (occurrence: US)
  Receive Date: 20231206
  Receipt Date: 20231206
  Transmission Date: 20240110
  Serious: Yes (Other)
  Sender: FDA-Public Use
  Company Number: US-CELLTRION INC.-2023US018860

PATIENT

DRUGS (5)
  1. RITUXIMAB [Suspect]
     Active Substance: RITUXIMAB
     Indication: Hairy cell leukaemia
  2. RITUXIMAB [Suspect]
     Active Substance: RITUXIMAB
     Dosage: UNK
     Dates: start: 202210
  3. PENTOSTATIN [Suspect]
     Active Substance: PENTOSTATIN
     Dosage: UNK
     Dates: start: 202210
  4. COVID-19 VACCINE [Concomitant]
     Dosage: THREE COVID-19 VACCINE DOSES
     Dates: start: 2021
  5. COVID-19 VACCINE [Concomitant]
     Dosage: 4TH COVID-19 VACCINE DOSE
     Dates: start: 202204

REACTIONS (4)
  - COVID-19 [Recovered/Resolved]
  - COVID-19 [Recovered/Resolved]
  - Herpes zoster [Unknown]
  - Intentional product use issue [Unknown]

NARRATIVE: CASE EVENT DATE: 20220801
